FAERS Safety Report 7798274-2 (Version None)
Quarter: 2011Q4

REPORT INFORMATION
  Report Type: 
  Country: None (occurrence: None)
  Receive Date: 20111005
  Receipt Date: 20110921
  Transmission Date: 20120403
  Serious: Yes (Other)
  Sender: FDA-Public Use
  Company Number: US-WATSON-2011-15359

PATIENT
  Sex: Female

DRUGS (1)
  1. METOPROLOL SUCCINATE [Suspect]
     Indication: TACHYCARDIA
     Dosage: UNK
     Route: 065
     Dates: start: 20110915, end: 20110922

REACTIONS (8)
  - HEART RATE INCREASED [None]
  - SUICIDAL IDEATION [None]
  - CRYING [None]
  - DRUG INEFFECTIVE FOR UNAPPROVED INDICATION [None]
  - ANXIETY [None]
  - BLOOD PRESSURE INCREASED [None]
  - FATIGUE [None]
  - TREMOR [None]
